FAERS Safety Report 11548413 (Version 1)
Quarter: 2015Q3

REPORT INFORMATION
  Report Type: Spontaneous
  Country: US (occurrence: US)
  Receive Date: 20150924
  Receipt Date: 20150924
  Transmission Date: 20151125
  Serious: Yes (Other)
  Sender: FDA-Public Use
  Company Number: US-INCYTE CORPORATION-2015IN000830

PATIENT
  Age: 75 Year
  Sex: Female

DRUGS (7)
  1. PROBIOTIC                          /06395501/ [Concomitant]
     Active Substance: BIFIDOBACTERIUM ANIMALIS SUBSP. LACTIS
  2. JAKAFI [Suspect]
     Active Substance: RUXOLITINIB
     Dosage: 20 MG, BID
     Route: 048
     Dates: start: 20141218
  3. JAKAFI [Suspect]
     Active Substance: RUXOLITINIB
     Dosage: 10 MG, BID
     Route: 048
     Dates: start: 201501
  4. AMLODIPINE W/HYDROCHLOROTHIAZIDE [Concomitant]
     Dosage: UNK, DAILY
  5. HYDROCHLOROTHIAZIDE. [Concomitant]
     Active Substance: HYDROCHLOROTHIAZIDE
  6. VAGIFEM [Concomitant]
     Active Substance: ESTRADIOL
  7. MULTIVITAMIN                       /00097801/ [Concomitant]
     Active Substance: VITAMINS

REACTIONS (7)
  - Asthenia [Unknown]
  - Red blood cell count decreased [Not Recovered/Not Resolved]
  - Abnormal weight gain [Unknown]
  - Constipation [Unknown]
  - Dyspnoea [Unknown]
  - Blood count abnormal [Unknown]
  - Anaemia [Unknown]

NARRATIVE: CASE EVENT DATE: 201501
